FAERS Safety Report 6401621-7 (Version None)
Quarter: 2009Q4

REPORT INFORMATION
  Report Type: 
  Country: None (occurrence: None)
  Receive Date: 20091015
  Receipt Date: 20091012
  Transmission Date: 20100525
  Serious: Yes (Death)
  Sender: FDA-Public Use
  Company Number: ZA-AVENTIS-200915845EU

PATIENT
  Age: 60 Year
  Sex: Male

DRUGS (7)
  1. CLEXANE [Suspect]
     Indication: THROMBOSIS PROPHYLAXIS
     Route: 058
     Dates: start: 20090918, end: 20090927
  2. HEPARIN [Suspect]
     Dates: start: 20090925
  3. ACTIVASE [Concomitant]
  4. SOLU-MEDROL [Concomitant]
     Indication: IMMUNOSUPPRESSION
     Dates: start: 20090918, end: 20091005
  5. PROGRAF [Concomitant]
     Dates: start: 20090918, end: 20091005
  6. BACTRIM DS [Concomitant]
     Indication: PROPHYLAXIS
     Dates: start: 20090918, end: 20091005
  7. VALCYTE [Concomitant]
     Indication: PROPHYLAXIS
     Dates: start: 20090918, end: 20091005

REACTIONS (2)
  - HEPARIN-INDUCED THROMBOCYTOPENIA [None]
  - HEPATIC FAILURE [None]
